FAERS Safety Report 18207303 (Version 1)
Quarter: 2020Q3

REPORT INFORMATION
  Report Type: Spontaneous
  Country: US (occurrence: US)
  Receive Date: 20200828
  Receipt Date: 20200828
  Transmission Date: 20201103
  Serious: No
  Sender: FDA-Public Use
  Company Number: US-SA-2020SA224053

PATIENT

DRUGS (2)
  1. LANTUS SOLOSTAR [Suspect]
     Active Substance: INSULIN GLARGINE
     Indication: TYPE 2 DIABETES MELLITUS
     Dosage: LOW DOSE, INCREASING BY 2 UNITS
     Route: 065
     Dates: start: 20200520
  2. LANTUS SOLOSTAR [Suspect]
     Active Substance: INSULIN GLARGINE
     Dosage: 26 IU, EVERY EVENING
     Route: 065

REACTIONS (4)
  - Product storage error [Unknown]
  - Visual impairment [Unknown]
  - Blood glucose abnormal [Recovering/Resolving]
  - Wrong technique in device usage process [Unknown]
